FAERS Safety Report 7351083-0 (Version None)
Quarter: 2011Q1

REPORT INFORMATION
  Report Type: 
  Country: None (occurrence: None)
  Receive Date: 20110314
  Receipt Date: 20110309
  Transmission Date: 20110831
  Serious: Yes (Disabling, Other)
  Sender: FDA-Public Use
  Company Number: CH-PFIZER INC-2010116458

PATIENT
  Sex: Female

DRUGS (1)
  1. SERTRALINE HYDROCHLORIDE [Suspect]
     Dosage: UNK

REACTIONS (5)
  - PELVIC DISCOMFORT [None]
  - FEMALE SEXUAL AROUSAL DISORDER [None]
  - SUICIDAL IDEATION [None]
  - STRESS [None]
  - ANXIETY [None]
